FAERS Safety Report 20081771 (Version 2)
Quarter: 2021Q4

REPORT INFORMATION
  Report Type: Spontaneous
  Country: US (occurrence: US)
  Receive Date: 20211117
  Receipt Date: 20211214
  Transmission Date: 20220303
  Serious: No
  Sender: FDA-Public Use
  Company Number: US-PFIZER INC-202101395610

PATIENT
  Age: 4 Year
  Sex: Male
  Weight: 14.06 kg

DRUGS (1)
  1. GENOTROPIN [Suspect]
     Active Substance: SOMATROPIN
     Indication: Short stature
     Dosage: 0.4 MG, 1X/DAY (0.4MG ONCE DAILY, INJECTED AT 7AM)
     Dates: start: 20210907

REACTIONS (5)
  - Fall [Unknown]
  - Concussion [Unknown]
  - Haematoma [Unknown]
  - Drug dose omission by device [Unknown]
  - Device operational issue [Unknown]

NARRATIVE: CASE EVENT DATE: 20210101
